FAERS Safety Report 15362486 (Version 3)
Quarter: 2018Q4

REPORT INFORMATION
  Report Type: Spontaneous
  Country: JP (occurrence: JP)
  Receive Date: 20180907
  Receipt Date: 20181116
  Transmission Date: 20190204
  Serious: Yes (Hospitalization, Other)
  Sender: FDA-Public Use
  Company Number: JP-OTSUKA-2018_030008

PATIENT
  Age: 93 Year
  Sex: Male

DRUGS (1)
  1. SAMSCA [Suspect]
     Active Substance: TOLVAPTAN
     Indication: CARDIAC FAILURE
     Dosage: 7.5 MG, QD
     Route: 048

REACTIONS (4)
  - Pneumonia aspiration [Unknown]
  - Pneumonia [Unknown]
  - Nasopharyngitis [Unknown]
  - Asthma [Unknown]
